FAERS Safety Report 11495358 (Version 1)
Quarter: 2015Q3

REPORT INFORMATION
  Report Type: Spontaneous
  Country: US (occurrence: US)
  Receive Date: 20150911
  Receipt Date: 20150911
  Transmission Date: 20151125
  Serious: No
  Sender: FDA-Public Use
  Company Number: US-ROCHE-1024077

PATIENT
  Sex: Male

DRUGS (3)
  1. COPEGUS [Suspect]
     Active Substance: RIBAVIRIN
     Indication: HEPATITIS C
     Route: 048
     Dates: start: 20110919
  2. METHADONE [Suspect]
     Active Substance: METHADONE HYDROCHLORIDE
     Indication: PRODUCT USED FOR UNKNOWN INDICATION
  3. PEGASYS [Suspect]
     Active Substance: PEGINTERFERON ALFA-2A
     Indication: HEPATITIS C
     Route: 058
     Dates: start: 20110919

REACTIONS (10)
  - Somnolence [Unknown]
  - Dry mouth [Unknown]
  - Headache [Unknown]
  - Asthenia [Unknown]
  - Panic attack [Unknown]
  - Weight decreased [Unknown]
  - Middle insomnia [Unknown]
  - Insomnia [Unknown]
  - White blood cell count decreased [Unknown]
  - Dyspepsia [Unknown]
